FAERS Safety Report 7018440-3 (Version None)
Quarter: 2010Q3

REPORT INFORMATION
  Report Type: 
  Country: None (occurrence: None)
  Receive Date: 20100924
  Receipt Date: 20100913
  Transmission Date: 20110219
  Serious: Yes (Death, Hospitalization)
  Sender: FDA-Public Use
  Company Number: 2009-02693

PATIENT
  Age: 75 Year
  Sex: Female
  Weight: 32 kg

DRUGS (9)
  1. VELCADE [Suspect]
     Indication: MULTIPLE MYELOMA
     Dosage: 1.1 MG/M2, INTRAVENOUS
     Route: 042
     Dates: start: 20090618, end: 20100625
  2. COTRIM [Concomitant]
  3. DIFLUCAN [Concomitant]
  4. TORSEMIDE [Concomitant]
  5. MAGLAX (MAGNESIUM OXIDE) [Concomitant]
  6. PANTOSIN (PANTETHINE) [Concomitant]
  7. LANSOPRAZOLE [Concomitant]
  8. ALKERAN [Concomitant]
  9. PREDNISOLONE [Concomitant]

REACTIONS (7)
  - CARDIOMEGALY [None]
  - CYTOMEGALOVIRUS INFECTION [None]
  - DILATATION ATRIAL [None]
  - INTERSTITIAL LUNG DISEASE [None]
  - OEDEMA PERIPHERAL [None]
  - PNEUMOCYSTIS JIROVECI PNEUMONIA [None]
  - RESPIRATORY FAILURE [None]
